FAERS Safety Report 7307325-0 (Version None)
Quarter: 2011Q1

REPORT INFORMATION
  Report Type: 
  Country: None (occurrence: None)
  Receive Date: 20110223
  Receipt Date: 20110211
  Transmission Date: 20110831
  Serious: Yes (Hospitalization, Other)
  Sender: FDA-Public Use
  Company Number: FR-PFIZER INC-2011037438

PATIENT
  Age: 89 Year
  Sex: Female

DRUGS (25)
  1. ZAMADOL [Concomitant]
  2. DISCOTRINE [Concomitant]
  3. LASIX [Concomitant]
  4. ESOMEPRAZOLE [Concomitant]
  5. STRONTIUM RANELATE [Concomitant]
  6. CORDARONE [Suspect]
     Dosage: 400 MG, 1X/DAY
     Route: 048
     Dates: start: 20101218, end: 20101221
  7. DIGOXIN [Suspect]
     Indication: CARDIAC FAILURE
     Dosage: UNK
     Route: 048
     Dates: start: 20101214, end: 20101222
  8. TAREG [Concomitant]
  9. VENTOLIN [Concomitant]
  10. CONTRAMAL [Concomitant]
  11. BISOPROLOL FUMARATE [Suspect]
     Indication: CARDIAC FAILURE
     Dosage: UNK
     Route: 048
     Dates: start: 20101214
  12. XANAX [Concomitant]
  13. ASPIRIN [Concomitant]
  14. DIFFU K [Concomitant]
  15. BRICANYL [Concomitant]
  16. LYRICA [Concomitant]
  17. CALCIDIA [Concomitant]
  18. CORDARONE [Suspect]
     Indication: ATRIAL FIBRILLATION
     Dosage: 1200 MG, 1X/DAY
     Route: 048
     Dates: start: 20101215, end: 20101216
  19. RIFADIN [Suspect]
     Indication: ARTHRITIS BACTERIAL
     Dosage: 300 MG, 4X/DAY
     Route: 048
     Dates: start: 20101019, end: 20101216
  20. ORBENIN CAP [Suspect]
     Indication: ARTHRITIS BACTERIAL
     Dosage: 3 G, 1X/DAY
     Route: 048
     Dates: start: 20101019, end: 20101216
  21. DILTIAZEM HYDROCHLORIDE [Concomitant]
  22. LOVENOX [Concomitant]
  23. CORDARONE [Suspect]
     Dosage: 200 MG, 1X/DAY
     Route: 048
     Dates: start: 20101222, end: 20110120
  24. ACETAMINOPHEN [Concomitant]
  25. UVEDOSE [Concomitant]

REACTIONS (2)
  - CYTOLYTIC HEPATITIS [None]
  - HEPATOCELLULAR INJURY [None]
